FAERS Safety Report 5917796-X (Version None)
Quarter: 2008Q4

REPORT INFORMATION
  Report Type: 
  Country: None (occurrence: None)
  Receive Date: 20081014
  Receipt Date: 20081006
  Transmission Date: 20090506
  Serious: Yes (Life-Threatening, Hospitalization)
  Sender: FDA-Public Use
  Company Number: NO-ASTRAZENECA-2008SE04783

PATIENT
  Age: 58 Year
  Sex: Female

DRUGS (3)
  1. ARIMIDEX [Suspect]
     Indication: BREAST CANCER
     Route: 048
     Dates: start: 20070815, end: 20070919
  2. LYRICA [Suspect]
     Route: 048
     Dates: start: 20070820, end: 20070921
  3. SOMAC [Suspect]
     Route: 048
     Dates: start: 20070815, end: 20070919

REACTIONS (1)
  - TOXIC EPIDERMAL NECROLYSIS [None]
